FAERS Safety Report 23977119 (Version 1)
Quarter: 2024Q2

REPORT INFORMATION
  Report Type: Spontaneous
  Country: ZA (occurrence: ZA)
  Receive Date: 20240614
  Receipt Date: 20240614
  Transmission Date: 20240716
  Serious: Yes (Hospitalization)
  Sender: FDA-Public Use
  Company Number: ZA-ABBOTT-2024A-1382663

PATIENT
  Age: 68 Year
  Sex: Male

DRUGS (22)
  1. CREON [Suspect]
     Active Substance: PANCRELIPASE AMYLASE\PANCRELIPASE LIPASE\PANCRELIPASE PROTEASE
     Indication: Pancreatic failure
     Dosage: 150 MG DIRECTIONS, TAKE ONE THREE TIMES A DAY DAILY,?10000 PANCRELIPASE
     Route: 048
  2. Synaleve [Concomitant]
     Indication: Pain
     Dosage: DIRECTIONS TAKE TWO TWICE DAILY? PARACETAMOL  400MG, CODEINE  PHOSPHATE 8MG,  MEPROBAMATE  200
     Route: 048
  3. PANTOPRAZOLE SODIUM [Concomitant]
     Active Substance: PANTOPRAZOLE SODIUM
     Indication: Ulcer
     Dosage: 20 MG DIRECTIONS AS DIRECTED
     Route: 048
  4. DS 24 [Concomitant]
     Indication: Product used for unknown indication
     Dosage: DIRECTIONS TAKE ONE DAILY
     Route: 048
  5. Enteron [Concomitant]
     Indication: Product used for unknown indication
     Dosage: DIRECTIONS TAKE ONE DAILY
     Route: 048
  6. ASPIRIN [Concomitant]
     Active Substance: ASPIRIN
     Indication: Blood disorder prophylaxis
     Dosage: 100 MG DIRECTIONS TAKE ONE DAILY
     Route: 048
  7. LIDOCAINE [Concomitant]
     Active Substance: LIDOCAINE
     Indication: Local anaesthesia
     Dosage: 5 % DIRECTIONS APPLY DAILY
     Route: 061
  8. ILEVRO [Concomitant]
     Active Substance: NEPAFENAC
     Indication: Product used for unknown indication
     Dosage: 3 MG DIRECTIONS INSERT ONE DROP DAILY
  9. Adco controme [Concomitant]
     Indication: Product used for unknown indication
     Dosage: 10 MG DIRECTIONS TAKE ONE TWICE DAILY
     Route: 048
  10. TOUJEO [Concomitant]
     Active Substance: INSULIN GLARGINE
     Indication: Type 1 diabetes mellitus
     Dosage: 300 IU DIRECTIONS INJECT 16 UNITS?PEN
     Route: 058
  11. AVOCADO OIL\SOYBEAN OIL [Concomitant]
     Active Substance: AVOCADO OIL\SOYBEAN OIL
     Indication: Product used for unknown indication
     Dosage: DIRECTIONS TAKE ONE DAILY
     Route: 048
  12. ENTIRO [Concomitant]
     Indication: Product used for unknown indication
     Dosage: DIRECTIONS TAKE ONE DAILY
     Route: 048
  13. ESOMEPRAZOLE [Concomitant]
     Active Substance: ESOMEPRAZOLE
     Indication: Gastrooesophageal reflux disease
     Dosage: 40 MG DIRECTIONS TAKE ONE DAILY
     Route: 048
  14. AMITRIPTYLINE HYDROCHLORIDE [Concomitant]
     Active Substance: AMITRIPTYLINE HYDROCHLORIDE
     Indication: Depression
     Dosage: 10 MG DIRECTIONS TAKE ONE DAILY
     Route: 048
  15. ERGOCALCIFEROL [Concomitant]
     Active Substance: ERGOCALCIFEROL
     Indication: Product used for unknown indication
     Dosage: 50000 IU DIRECTIONS TAKE THREE TABLETS ONCE A WEEK
     Route: 048
  16. FERROUS BISGLYCINATE\FOLIC ACID [Concomitant]
     Active Substance: FERROUS BISGLYCINATE\FOLIC ACID
     Indication: Product used for unknown indication
     Dosage: 15 MG DIRECTIONS AS DIRECTED
     Route: 048
  17. CEFUROXIME [Concomitant]
     Active Substance: CEFUROXIME
     Indication: Product used for unknown indication
     Dosage: 250 MG DIRECTIONS TAKE ONE TWICE DAILY
     Route: 048
  18. NOVORAPID [Concomitant]
     Active Substance: INSULIN ASPART
     Indication: Type 1 diabetes mellitus
     Dosage: 100 IU DIRECTIONS INKECT 12-16 UNITS THREE TIMES A DAY?PENSET
     Route: 058
  19. Lipogen [Concomitant]
     Indication: Blood cholesterol
     Dosage: 10 MG DIRECTIONS TAKE ONE FOUR TIMES A WEEK
     Route: 048
  20. AGIOBULK [Concomitant]
     Indication: Product used for unknown indication
     Dosage: DIRECTIONS USE 10ML DAILY
     Route: 048
  21. Pantocid [Concomitant]
     Indication: Ulcer
     Dosage: 40 MG DIRECTIONS TAKE ONE DAILY
     Route: 048
  22. MAGNESIUM CHLORIDE [Concomitant]
     Active Substance: MAGNESIUM CHLORIDE
     Indication: Product used for unknown indication
     Dosage: DIRECTIONS TAKE TWO DAILY
     Route: 048

REACTIONS (2)
  - Limb operation [Unknown]
  - Nephrolithiasis [Unknown]
